FAERS Safety Report 19732090 (Version 1)
Quarter: 2021Q3

REPORT INFORMATION
  Report Type: Spontaneous
  Country: UA (occurrence: UA)
  Receive Date: 20210820
  Receipt Date: 20210820
  Transmission Date: 20211014
  Serious: Yes (Life-Threatening)
  Sender: FDA-Public Use
  Company Number: NVSC2021UA188382

PATIENT
  Age: 51 Year
  Sex: Male
  Weight: 89 kg

DRUGS (7)
  1. EMETON (ONDANSETRON HYDROCHLORIDE) [Suspect]
     Active Substance: ONDANSETRON HYDROCHLORIDE
     Indication: PRODUCT USED FOR UNKNOWN INDICATION
     Dosage: 4 ML, (8 MG) QD
     Route: 042
     Dates: start: 20210811, end: 20210811
  2. NACL.9% [Suspect]
     Active Substance: SODIUM CHLORIDE
     Indication: PRODUCT USED FOR UNKNOWN INDICATION
     Dosage: 200 ML, QD
     Route: 042
     Dates: start: 20210811, end: 20210811
  3. XELODA [Concomitant]
     Active Substance: CAPECITABINE
     Indication: GASTRIC CANCER
     Dosage: 2000 MG, BID
     Route: 048
     Dates: start: 20210811
  4. NACL.9% [Suspect]
     Active Substance: SODIUM CHLORIDE
     Dosage: 100 ML, QD
     Route: 042
     Dates: start: 20210811
  5. GLUCOSE [Suspect]
     Active Substance: DEXTROSE
     Indication: PRODUCT USED FOR UNKNOWN INDICATION
     Dosage: 400 ML, QD
     Route: 042
     Dates: start: 20210811, end: 20210811
  6. OXALIPLATIN ^EBEWE^ 200 MG/40 ML [Suspect]
     Active Substance: OXALIPLATIN
     Indication: RECTAL CANCER
     Dosage: 40 ML(200 MG), QD
     Route: 042
     Dates: start: 20210811, end: 20210811
  7. OXALIPLATIN ^EBEWE^ 200 MG/40 ML [Suspect]
     Active Substance: OXALIPLATIN
     Dosage: 10 ML(50 MG), QD
     Route: 042
     Dates: start: 20210811, end: 20210811

REACTIONS (4)
  - Hyperthermia [Recovered/Resolved]
  - Nausea [Recovered/Resolved]
  - Vomiting [Recovered/Resolved]
  - Tachycardia [Recovered/Resolved]

NARRATIVE: CASE EVENT DATE: 20210811
